FAERS Safety Report 5268543-9 (Version None)
Quarter: 2007Q1

REPORT INFORMATION
  Report Type: 
  Country: None (occurrence: None)
  Receive Date: 20070315
  Receipt Date: 20070315
  Transmission Date: 20070707
  Serious: No
  Sender: FDA-Public Use
  Company Number: None

PATIENT
  Age: 35 Year
  Sex: Female
  Weight: 54.4316 kg

DRUGS (1)
  1. SOMINEX [Suspect]
     Indication: INSOMNIA
     Dosage: AS DIRECTED X 3 PO
     Route: 048
     Dates: start: 19990801, end: 19991028

REACTIONS (3)
  - ANXIETY [None]
  - POOR QUALITY SLEEP [None]
  - SOMNOLENCE [None]
